FAERS Safety Report 6528998-6 (Version None)
Quarter: 2009Q4

REPORT INFORMATION
  Report Type: 
  Country: None (occurrence: None)
  Receive Date: 20091224
  Receipt Date: 20091211
  Transmission Date: 20100525
  Serious: Yes (Hospitalization)
  Sender: FDA-Public Use
  Company Number: PAR_03295_2009

PATIENT
  Sex: Male

DRUGS (5)
  1. IBUPROFEN [Suspect]
     Indication: PAIN
     Dosage: (1800 MG)
     Dates: start: 20091207
  2. XARELTO         (XARELTO - RIVAROXABAN) (NOT SPECIFIED) [Suspect]
     Indication: DRUG USE FOR UNKNOWN INDICATION
     Dosage: (DF ORAL)
     Route: 048
  3. FLOTRIN [Concomitant]
  4. ZINACEF /00454601/ [Concomitant]
  5. PANTOZOL /01263202/ [Concomitant]

REACTIONS (3)
  - ARTHROPATHY [None]
  - COAGULATION TEST ABNORMAL [None]
  - HAEMORRHAGE [None]
